FAERS Safety Report 12519749 (Version 1)
Quarter: 2016Q2

REPORT INFORMATION
  Report Type: Spontaneous
  Country: US (occurrence: US)
  Receive Date: 20160630
  Receipt Date: 20160630
  Transmission Date: 20160815
  Serious: No
  Sender: FDA-Public Use
  Company Number: US-TEVA-665638USA

PATIENT
  Sex: Female

DRUGS (2)
  1. CARALLUMA FIMBRIATA EXTRACT [Concomitant]
  2. AZILECT [Suspect]
     Active Substance: RASAGILINE MESYLATE
     Dosage: 1 EVERY OTHER DAY
     Dates: start: 201303

REACTIONS (1)
  - Off label use [Unknown]
